FAERS Safety Report 16287220 (Version 1)
Quarter: 2019Q2

REPORT INFORMATION
  Report Type: Report from Study
  Country: TW (occurrence: TW)
  Receive Date: 20190508
  Receipt Date: 20190508
  Transmission Date: 20190711
  Serious: Yes (Hospitalization)
  Sender: FDA-Public Use
  Company Number: TW-EISAI MEDICAL RESEARCH-EC-2019-056012

PATIENT
  Age: 65 Year
  Sex: Male
  Weight: 53.6 kg

DRUGS (5)
  1. LENVATINIB [Suspect]
     Active Substance: LENVATINIB
     Indication: LEIOMYOSARCOMA
  2. ERIBULIN [Suspect]
     Active Substance: ERIBULIN
     Indication: LIPOSARCOMA
     Route: 041
     Dates: start: 20190301, end: 20190426
  3. ERIBULIN [Suspect]
     Active Substance: ERIBULIN
     Indication: LEIOMYOSARCOMA
  4. MEGESTROL ACETATE. [Concomitant]
     Active Substance: MEGESTROL ACETATE
  5. LENVATINIB [Suspect]
     Active Substance: LENVATINIB
     Indication: LIPOSARCOMA
     Route: 048
     Dates: start: 20190301, end: 20190504

REACTIONS (1)
  - Febrile neutropenia [Not Recovered/Not Resolved]

NARRATIVE: CASE EVENT DATE: 20190504
